FAERS Safety Report 16642563 (Version 1)
Quarter: 2019Q3

REPORT INFORMATION
  Report Type: Spontaneous
  Country: US (occurrence: US)
  Receive Date: 20190729
  Receipt Date: 20190729
  Transmission Date: 20191004
  Serious: Yes (Other)
  Sender: FDA-Public Use
  Company Number: US-MYLANLABS-2019M1070142

PATIENT
  Age: 38 Year
  Sex: Male

DRUGS (4)
  1. ARSENIC TRIOXIDE. [Concomitant]
     Active Substance: ARSENIC TRIOXIDE
     Indication: ACUTE PROMYELOCYTIC LEUKAEMIA
     Dosage: INDUCTION THERAPY
     Route: 065
  2. TRETINOIN. [Suspect]
     Active Substance: TRETINOIN
     Indication: ACUTE PROMYELOCYTIC LEUKAEMIA
     Dosage: INDUCTION THERAPY
     Route: 065
  3. HYDROXYUREA. [Concomitant]
     Active Substance: HYDROXYUREA
     Indication: DIFFERENTIATION SYNDROME
     Dosage: UNK
     Route: 065
  4. DEXAMETHASONE. [Concomitant]
     Active Substance: DEXAMETHASONE
     Indication: DIFFERENTIATION SYNDROME
     Dosage: UNK
     Route: 065

REACTIONS (3)
  - Hypervitaminosis A [Recovering/Resolving]
  - Arthralgia [Recovering/Resolving]
  - Bone pain [Recovering/Resolving]
